FAERS Safety Report 8549688 (Version 2)
Quarter: 2014Q2

REPORT INFORMATION
  Report Type: Spontaneous
  Country: US (occurrence: None)
  Receive Date: 20120430
  Receipt Date: 20140422
  Transmission Date: 20141212
  Serious: Yes (Other)
  Sender: FDA-Public Use
  Company Number: US-JNJFOC-20120409022

PATIENT
  Sex: 0

DRUGS (2)
  1. DECITABINE [Suspect]
     Indication: ACUTE MYELOID LEUKAEMIA
     Dosage: 20 MG/M2, IN 1 CYCLICAL, INTRAVENOUS
     Route: 042
  2. MIDOSTAURIN [Suspect]
     Indication: ACUTE MYELOID LEUKAEMIA
     Dosage: 1) COMBINED WITH DECITABINE EITHER SEQUENTIALLY (DAYS 8-21) OR CONCURRENTLY (DAYS 1-28)

REACTIONS (1)
  - Electrocardiogram QT prolonged [None]
